FAERS Safety Report 24201505 (Version 1)
Quarter: 2024Q3

REPORT INFORMATION
  Report Type: Spontaneous
  Country: US (occurrence: US)
  Receive Date: 20240812
  Receipt Date: 20240812
  Transmission Date: 20241017
  Serious: No
  Sender: Haleon PLC
  Company Number: US-HALEON-2191504

PATIENT

DRUGS (1)
  1. NICODERM CQ [Suspect]
     Active Substance: NICOTINE
     Indication: Nicotine dependence
     Route: 065

REACTIONS (5)
  - Application site irritation [Unknown]
  - Insomnia [Unknown]
  - Application site erythema [Unknown]
  - Restlessness [Unknown]
  - Application site pruritus [Unknown]
